FAERS Safety Report 8394389-9 (Version None)
Quarter: 2012Q2

REPORT INFORMATION
  Report Type: 
  Country: None (occurrence: None)
  Receive Date: 20120525
  Receipt Date: 20120525
  Transmission Date: 20120825
  Serious: Yes (Life-Threatening, Hospitalization)
  Sender: FDA-Public Use
  Company Number: None

PATIENT
  Sex: Female
  Weight: 59.1 kg

DRUGS (2)
  1. FLUOROURACIL INJ [Suspect]
     Indication: COLON CANCER
     Dosage: 708MG ONCE IV PUSH : 4248MG ONCE CONTINUOUS INFUSION OVER 46 HOURS
     Route: 042
     Dates: start: 20120420, end: 20120422
  2. FLUOROURACIL INJ [Suspect]
     Indication: COLON CANCER
     Dosage: 708MG ONCE IV PUSH : 4248MG ONCE CONTINUOUS INFUSION OVER 46 HOURS
     Route: 042
     Dates: start: 20120420

REACTIONS (11)
  - OROPHARYNGEAL PAIN [None]
  - STOMATITIS [None]
  - ENZYME ABNORMALITY [None]
  - SKIN REACTION [None]
  - VOMITING [None]
  - NEUTROPENIA [None]
  - NAUSEA [None]
  - DIARRHOEA [None]
  - ORAL PAIN [None]
  - THROMBOCYTOPENIA [None]
  - LETHARGY [None]
